FAERS Safety Report 12625361 (Version 2)
Quarter: 2016Q3

REPORT INFORMATION
  Report Type: Spontaneous
  Country: CH (occurrence: CH)
  Receive Date: 20160805
  Receipt Date: 20160826
  Transmission Date: 20161109
  Serious: Yes (Other)
  Sender: FDA-Public Use
  Company Number: CH-VIFOR (INTERNATIONAL) INC.-VIT-2016-03916

PATIENT
  Age: 48 Year
  Sex: Male
  Weight: 99 kg

DRUGS (13)
  1. VELPHORO [Suspect]
     Active Substance: FERRIC OXYHYDROXIDE
     Indication: HYPERPHOSPHATAEMIA
     Route: 048
     Dates: start: 20160607, end: 201607
  2. METOPROLOL. [Concomitant]
     Active Substance: METOPROLOL
  3. RENAGEL [Concomitant]
     Active Substance: SEVELAMER HYDROCHLORIDE
  4. MG DIASPORAL [Concomitant]
  5. APROVEL [Concomitant]
     Active Substance: IRBESARTAN
  6. ROCALTROL [Concomitant]
     Active Substance: CALCITRIOL
  7. PRADIF [Concomitant]
     Active Substance: TAMSULOSIN HYDROCHLORIDE
  8. NEPHROTRANS [Concomitant]
     Active Substance: SODIUM BICARBONATE
  9. CALCIUM ACETATE. [Concomitant]
     Active Substance: CALCIUM ACETATE
  10. TOREM [Concomitant]
     Active Substance: TORSEMIDE
  11. DAFALGAN [Concomitant]
     Active Substance: ACETAMINOPHEN
  12. NOVALGIN [Concomitant]
     Active Substance: METAMIZOLE SODIUM
  13. AMLODIPINE [Concomitant]
     Active Substance: AMLODIPINE BESYLATE

REACTIONS (3)
  - Skin lesion [Recovered/Resolved]
  - Excoriation [Recovered/Resolved]
  - Pruritus [Recovered/Resolved]

NARRATIVE: CASE EVENT DATE: 201606
